FAERS Safety Report 4343965-9 (Version None)
Quarter: 2004Q2

REPORT INFORMATION
  Report Type: 
  Country: None (occurrence: None)
  Receive Date: 20040422
  Receipt Date: 20040412
  Transmission Date: 20050107
  Serious: Yes (Hospitalization)
  Sender: FDA-Public Use
  Company Number: US-JNJFOC-20040403117

PATIENT
  Sex: Female

DRUGS (3)
  1. DURAGESIC [Suspect]
     Dates: start: 20040320
  2. PERCOCET [Concomitant]
     Route: 049
  3. PERCOCET [Concomitant]
     Indication: PAIN
     Route: 049

REACTIONS (1)
  - COMA [None]
